FAERS Safety Report 21915165 (Version 1)
Quarter: 2023Q1

REPORT INFORMATION
  Report Type: Spontaneous
  Country: US (occurrence: US)
  Receive Date: 20230126
  Receipt Date: 20230126
  Transmission Date: 20230418
  Serious: No
  Sender: FDA-Public Use
  Company Number: US-CATALYST PHARMACEUTICALS, INC-2022CAT00276

PATIENT
  Age: 84 Year
  Sex: Male
  Weight: 108.84 kg

DRUGS (20)
  1. FIRDAPSE [Suspect]
     Active Substance: AMIFAMPRIDINE PHOSPHATE
     Indication: Myasthenic syndrome
     Dosage: 15 MG, 3X/DAY
     Route: 048
     Dates: start: 20190409
  2. ALBUTEROL [Concomitant]
     Active Substance: ALBUTEROL
     Dosage: 2 DOSAGE FORM (PUFFS), AS NEEDED
  3. AMLODIPINE [Concomitant]
     Active Substance: AMLODIPINE BESYLATE
     Dosage: 10 MG, 1X/DAY
  4. ASPIRIN [Concomitant]
     Active Substance: ASPIRIN
     Dosage: 81 MG, 1X/DAY
  5. CENTRUM SILVER 50+ MEN [Concomitant]
     Dosage: 1 TABLETS, 1X/DAY
  6. CHLOR-TRIMETON [Concomitant]
     Active Substance: CHLORPHENIRAMINE MALEATE
     Dosage: 4 MG, AS NEEDED
  7. ELIQUIS [Concomitant]
     Active Substance: APIXABAN
     Dosage: 5 MG, 2X/DAY
  8. FERROUS SULFATE [Concomitant]
     Active Substance: FERROUS SULFATE
     Dosage: 27 MG, 1X/DAY
  9. FINASTERIDE [Concomitant]
     Active Substance: FINASTERIDE
     Dosage: 5 MG, 1X/DAY
  10. HYDROCHLOROTHIAZIDE [Concomitant]
     Active Substance: HYDROCHLOROTHIAZIDE
     Dosage: 25 MG, 1X/DAY
  11. INTUNIV [Concomitant]
     Active Substance: GUANFACINE HYDROCHLORIDE
     Dosage: 2 MG, 1X/DAY EVERY EVENING
  12. KLOR-CON M20 [Concomitant]
     Active Substance: POTASSIUM CHLORIDE
     Dosage: 20 MEQ, 1X/DAY
  13. LOSARTAN [Concomitant]
     Active Substance: LOSARTAN
     Dosage: 25 MG, 1X/DAY
  14. MESTINON [Concomitant]
     Active Substance: PYRIDOSTIGMINE BROMIDE
     Dosage: 60 MG, 2X/DAY
  15. METOPROLOL SUCCINATE [Concomitant]
     Active Substance: METOPROLOL SUCCINATE
     Dosage: 100 MG, 1X/DAY
  16. NIACIN [Concomitant]
     Active Substance: NIACIN
     Dosage: 1000 MG, 1X/DAY
  17. HYDROCHLOROTHIAZIDE\OLMESARTAN MEDOXOMIL [Concomitant]
     Active Substance: HYDROCHLOROTHIAZIDE\OLMESARTAN MEDOXOMIL
     Dosage: UNK, 2X/DAY
  18. OMEPRAZOLE [Concomitant]
     Active Substance: OMEPRAZOLE
     Dosage: 20 MG, 1X/DAY
  19. PULMICORT FLEXHALER [Concomitant]
     Active Substance: BUDESONIDE
     Dosage: 200 MCG (PUFF), 1X/DAY AT BEDTIME
  20. TRAMADOL [Concomitant]
     Active Substance: TRAMADOL
     Dosage: 50 MG, AS NEEDED

REACTIONS (2)
  - Nasal septum deviation [Recovered/Resolved]
  - Herpes zoster [Recovering/Resolving]

NARRATIVE: CASE EVENT DATE: 20220613
